FAERS Safety Report 19609260 (Version 1)
Quarter: 2021Q3

REPORT INFORMATION
  Report Type: Report from Study
  Country: US (occurrence: US)
  Receive Date: 20210726
  Receipt Date: 20210726
  Transmission Date: 20211014
  Serious: No
  Sender: FDA-Public Use
  Company Number: US-BIOVITRUM-2021US1428

PATIENT
  Age: 69 Year
  Sex: Male

DRUGS (2)
  1. KINERET [Suspect]
     Active Substance: ANAKINRA
     Indication: IMMUNE SYSTEM DISORDER
     Route: 058
     Dates: start: 20210206
  2. KINERET [Suspect]
     Active Substance: ANAKINRA
     Indication: POLYMYALGIA RHEUMATICA
     Route: 058
     Dates: start: 20190328

REACTIONS (4)
  - Urinary tract infection [Unknown]
  - Off label use [Not Recovered/Not Resolved]
  - Product dose omission issue [Unknown]
  - Prostatic specific antigen increased [Unknown]

NARRATIVE: CASE EVENT DATE: 20210206
